FAERS Safety Report 6586356-2 (Version None)
Quarter: 2010Q1

REPORT INFORMATION
  Report Type: 
  Country: None (occurrence: None)
  Receive Date: 20100217
  Receipt Date: 20100204
  Transmission Date: 20100710
  Serious: Yes (Hospitalization, Disabling)
  Sender: FDA-Public Use
  Company Number: DE-GENENTECH-298005

PATIENT
  Sex: Female

DRUGS (10)
  1. RITUXIMAB [Suspect]
     Indication: NON-HODGKIN'S LYMPHOMA
     Dosage: 570 MG, UNK
     Route: 065
     Dates: start: 20080417
  2. RITUXIMAB [Suspect]
     Dosage: 570 MG, UNK
     Route: 065
     Dates: start: 20080603
  3. ETOPOSIDE [Suspect]
     Indication: NON-HODGKIN'S LYMPHOMA
     Dosage: 150 MG, UNK
     Route: 065
     Dates: start: 20080417
  4. ETOPOSIDE [Suspect]
     Dosage: 150 MG, UNK
     Route: 065
     Dates: start: 20080603
  5. IFOSFAMIDE [Suspect]
     Indication: NON-HODGKIN'S LYMPHOMA
     Dosage: 7540 MG, UNK
     Route: 065
     Dates: start: 20080418
  6. IFOSFAMIDE [Suspect]
     Dosage: 7690 MG, UNK
     Route: 065
     Dates: start: 20080604
  7. CARBOPLATIN [Suspect]
     Indication: NON-HODGKIN'S LYMPHOMA
     Dosage: 590 MG, UNK
     Route: 065
     Dates: start: 20080418
  8. CARBOPLATIN [Suspect]
     Dosage: 580 MG, UNK
     Route: 065
     Dates: start: 20080604
  9. GRANULOCYTE COLONY STIMULATING FACTOR [Suspect]
     Indication: NON-HODGKIN'S LYMPHOMA
     Dosage: UNK
     Route: 065
  10. GRANULOCYTE COLONY STIMULATING FACTOR [Suspect]
     Dosage: UNK
     Route: 065

REACTIONS (8)
  - ANAEMIA [None]
  - CANDIDIASIS [None]
  - GASTROINTESTINAL TOXICITY [None]
  - HEPATOTOXICITY [None]
  - NEUTROPENIC INFECTION [None]
  - PNEUMONIA [None]
  - SEPSIS [None]
  - THROMBOCYTOPENIA [None]
